FAERS Safety Report 19898151 (Version 4)
Quarter: 2021Q4

REPORT INFORMATION
  Report Type: Spontaneous
  Country: US (occurrence: US)
  Receive Date: 20210930
  Receipt Date: 20211111
  Transmission Date: 20220303
  Serious: No
  Sender: FDA-Public Use
  Company Number: US-BAUSCH-BL-2021-031969

PATIENT
  Age: 75 Year
  Sex: Male

DRUGS (8)
  1. LACRISERT [Suspect]
     Active Substance: HYDROXYPROPYL CELLULOSE
     Indication: Dry eye
     Dosage: LEFT EYE ONCE DAILY
     Route: 047
  2. ALFUZOSIN [Concomitant]
     Active Substance: ALFUZOSIN
     Indication: Product used for unknown indication
  3. HYPOCHLOROUS ACID [Concomitant]
     Active Substance: HYPOCHLOROUS ACID
     Indication: Product used for unknown indication
  4. FAMOTIDINE [Concomitant]
     Active Substance: FAMOTIDINE
     Indication: Product used for unknown indication
  5. FISH OIL [Concomitant]
     Active Substance: FISH OIL
     Indication: Product used for unknown indication
  6. BLACK CURRANT OIL [Concomitant]
     Indication: Product used for unknown indication
  7. LEVOTHYROXINE [Concomitant]
     Active Substance: LEVOTHYROXINE
     Indication: Product used for unknown indication
  8. RETAIN [Concomitant]
     Indication: Product used for unknown indication

REACTIONS (3)
  - Instillation site lacrimation [Unknown]
  - Instillation site discharge [Unknown]
  - Expulsion of medication [Unknown]

NARRATIVE: CASE EVENT DATE: 20210901
